FAERS Safety Report 10561770 (Version 4)
Quarter: 2016Q1

REPORT INFORMATION
  Report Type: Report from Study
  Country: CA (occurrence: CA)
  Receive Date: 20141103
  Receipt Date: 20160328
  Transmission Date: 20160525
  Serious: Yes (Hospitalization, Other)
  Sender: FDA-Public Use
  Company Number: CA-AMGEN-CANSL2014083763

PATIENT
  Age: 68 Year
  Sex: Female
  Weight: 72.56 kg

DRUGS (25)
  1. CYMBALTA [Concomitant]
     Active Substance: DULOXETINE HYDROCHLORIDE
     Indication: FIBROMYALGIA
     Dosage: 60 MG, ONE TABLET, IDUNK
     Dates: start: 2014
  2. PRO BIOTIC BLEND [Concomitant]
     Active Substance: BIFIDOBACTERIUM SPP.\BIFIDOBACTERIUM LONGUM\LACTOBACILLUS ACIDOPHILUS
  3. CALCIUM VITAMIN D [Concomitant]
     Active Substance: CALCIUM\VITAMIN D
     Indication: OSTEOPOROSIS
     Dosage: 500/1000
     Route: 048
     Dates: start: 2008
  4. REMERON [Concomitant]
     Active Substance: MIRTAZAPINE
  5. DILTIAZEM [Concomitant]
     Active Substance: DILTIAZEM
  6. ACTONEL [Concomitant]
     Active Substance: RISEDRONATE SODIUM
     Dosage: UNK
     Dates: start: 2008
  7. ZOFRAN [Concomitant]
     Active Substance: ONDANSETRON HYDROCHLORIDE
  8. AMIODARONE [Concomitant]
     Active Substance: AMIODARONE
     Indication: CORONARY ARTERY DISEASE
     Dosage: 200 MG, UNK
     Route: 048
     Dates: start: 2012
  9. OMEGA 3                            /01333901/ [Concomitant]
     Active Substance: FISH OIL\TOCOPHEROL
  10. PANTOLOC                           /01263204/ [Concomitant]
     Active Substance: PANTOPRAZOLE SODIUM
     Indication: DYSPEPSIA
     Dosage: 40 MG, ONE TABKLET ID, UNK
     Dates: start: 2010
  11. PROLIA [Suspect]
     Active Substance: DENOSUMAB
     Indication: OSTEOPOROSIS POSTMENOPAUSAL
     Dosage: 60 MG/ML
     Route: 065
     Dates: start: 20140204
  12. HYZAAR [Concomitant]
     Active Substance: HYDROCHLOROTHIAZIDE\LOSARTAN POTASSIUM
     Indication: HYPERTENSION
     Dosage: 100/25, ONE TABLET, ID
     Dates: start: 2008
  13. ULTRAN                             /01269001/ [Concomitant]
  14. TRAMADOL HYDROCHLORIDE. [Concomitant]
     Active Substance: TRAMADOL HYDROCHLORIDE
     Indication: FIBROMYALGIA
     Dosage: 150 MG, UNK
     Route: 048
     Dates: start: 2015
  15. SPIRONOLACTONE. [Concomitant]
     Active Substance: SPIRONOLACTONE
     Indication: HYPERTENSION
     Dosage: 25 MG, ONE TABLET, ID UNK
     Dates: start: 2008
  16. PANTOPRAZOLE [Concomitant]
     Active Substance: PANTOPRAZOLE SODIUM
  17. LIPITOR [Concomitant]
     Active Substance: ATORVASTATIN CALCIUM
     Indication: CORONARY ARTERY DISEASE
     Dosage: 10 MG, UNK
     Route: 048
     Dates: start: 2009
  18. ATORVASTATIN [Concomitant]
     Active Substance: ATORVASTATIN
  19. LYRICA [Concomitant]
     Active Substance: PREGABALIN
     Indication: FIBROMYALGIA
     Dosage: 250 MG, UNK
     Route: 048
     Dates: start: 2014
  20. VITAMIN D                          /00107901/ [Concomitant]
     Active Substance: ERGOCALCIFEROL
  21. ASA [Concomitant]
     Active Substance: ASPIRIN
  22. DOXAZOSIN [Concomitant]
     Active Substance: DOXAZOSIN\DOXAZOSIN MESYLATE
  23. CLONIDINE. [Concomitant]
     Active Substance: CLONIDINE
     Indication: HYPERTENSION
     Dosage: 0.1 MG, HALF TABLET, BID
     Dates: start: 2008
  24. SOLUCAL [Concomitant]
  25. TYLENOL [Concomitant]
     Active Substance: ACETAMINOPHEN

REACTIONS (7)
  - Wrist fracture [Not Recovered/Not Resolved]
  - Fibula fracture [Unknown]
  - Hospitalisation [Unknown]
  - Fall [Unknown]
  - Fibromyalgia [Unknown]
  - Tibia fracture [Unknown]
  - Ankle fracture [Recovered/Resolved]

NARRATIVE: CASE EVENT DATE: 20140921
